FAERS Safety Report 23907246 (Version 1)
Quarter: 2024Q2

REPORT INFORMATION
  Report Type: Spontaneous
  Country: US (occurrence: US)
  Receive Date: 20240528
  Receipt Date: 20240528
  Transmission Date: 20240716
  Serious: Yes (Hospitalization)
  Sender: FDA-Public Use
  Company Number: US-ABBVIE-5775826

PATIENT
  Age: 84 Year
  Sex: Male

DRUGS (10)
  1. VENCLEXTA [Suspect]
     Active Substance: VENETOCLAX
     Indication: Acute myeloid leukaemia
     Dosage: TAKE 4 TAB BY MOUTH EVERY 24 HOURS . TAKE EVERY 24 HR ON DAYS 1 THROUGH 10 OF  CHEMO CYCLE?FORM S...
     Route: 048
  2. VENCLEXTA [Suspect]
     Active Substance: VENETOCLAX
     Indication: Acute myeloid leukaemia
     Route: 048
     Dates: start: 202308
  3. DIETARY SUPPLEMENT [Concomitant]
     Active Substance: DIETARY SUPPLEMENT
     Indication: Prostatic disorder
     Dosage: 350 MILLIGRAMS OF BETA SITOSTEROL AND 40 MCG VITAMIN D3 40 MCG. 2 TABLETS ONCE A  DAY
     Route: 048
  4. VIDAZA [Concomitant]
     Active Substance: AZACITIDINE
     Indication: Acute myeloid leukaemia
     Dosage: 2 INJECTIONS OF 2.8 CC FOR A TOTAL OF 5.6 CC
     Route: 058
     Dates: start: 202308
  5. LASIX [Concomitant]
     Active Substance: FUROSEMIDE
     Indication: Fluid retention
     Dosage: 1 PILL ON ODD DAY 2 PILLS ON EVEN DAYS?FORM STRENGTH: 20 MILLIGRAM
     Route: 048
     Dates: start: 202310
  6. ACYCLOVIR [Concomitant]
     Active Substance: ACYCLOVIR
     Indication: Product used for unknown indication
     Dosage: 12 HOURS APART?FORM STRENGTH: 800 MILLIGRAM
     Route: 048
     Dates: start: 202308
  7. AMLODIPINE BESYLATE\BENAZEPRIL HYDROCHLORIDE [Concomitant]
     Active Substance: AMLODIPINE BESYLATE\BENAZEPRIL HYDROCHLORIDE
     Indication: Hypertension
     Dosage: GEL CAPSULE?FORM STRENGTH: 5 MILLIGRAM
     Route: 048
  8. CIPROFLOXACIN [Concomitant]
     Active Substance: CIPROFLOXACIN
     Indication: Product used for unknown indication
     Dosage: FORM STRENGTH: 500 MILLIGRAM
     Route: 048
     Dates: start: 202308
  9. VITAMIN D3 [Concomitant]
     Active Substance: CHOLECALCIFEROL
     Indication: Vitamin D deficiency
     Dosage: FORM STRENGTH: 25 MICROGRAM
     Route: 048
  10. LEVOTHYROXINE [Concomitant]
     Active Substance: LEVOTHYROXINE\LEVOTHYROXINE SODIUM
     Indication: Hypothyroidism
     Dosage: FORM STRENGTH: 25 MICROGRAM
     Route: 048
     Dates: start: 202307

REACTIONS (2)
  - Hospitalisation [Unknown]
  - Product outer packaging issue [Unknown]

NARRATIVE: CASE EVENT DATE: 20230801
